FAERS Safety Report 15152852 (Version 3)
Quarter: 2019Q2

REPORT INFORMATION
  Report Type: Report from Study
  Country: IT (occurrence: IT)
  Receive Date: 20180717
  Receipt Date: 20190515
  Transmission Date: 20190711
  Serious: Yes (Hospitalization, Other)
  Sender: FDA-Public Use
  Company Number: IT-BRISTOL-MYERS SQUIBB COMPANY-BMS-2018-024629

PATIENT
  Age: 79 Year
  Sex: Male
  Weight: 77 kg

DRUGS (2)
  1. IPILIMUMAB [Suspect]
     Active Substance: IPILIMUMAB
     Indication: NON-SMALL CELL LUNG CANCER
     Dosage: 77 MG, UNK
     Route: 042
     Dates: start: 20171020, end: 20180223
  2. NIVOLUMAB [Suspect]
     Active Substance: NIVOLUMAB
     Indication: NON-SMALL CELL LUNG CANCER
     Dosage: 240 MG, UNK
     Route: 042
     Dates: start: 20171020, end: 20180223

REACTIONS (4)
  - Acute respiratory failure [Recovering/Resolving]
  - Escherichia urinary tract infection [Recovering/Resolving]
  - Acute kidney injury [Recovered/Resolved]
  - Thrombocytopenia [Recovered/Resolved]

NARRATIVE: CASE EVENT DATE: 20180314
